FAERS Safety Report 10573447 (Version 1)
Quarter: 2014Q4

REPORT INFORMATION
  Report Type: Spontaneous
  Country: US (occurrence: US)
  Receive Date: 20141110
  Receipt Date: 20141110
  Transmission Date: 20150529
  Serious: No
  Sender: FDA-Public Use
  Company Number: US-ENDO PHARMACEUTICALS INC.-ACC320130006

PATIENT
  Sex: Female

DRUGS (2)
  1. ACETAMINOPHEN #4 [Suspect]
     Active Substance: ACETAMINOPHEN\CODEINE PHOSPHATE
     Dosage: 300/60 MG
     Route: 048
  2. ACETAMINOPHEN #4 [Suspect]
     Active Substance: ACETAMINOPHEN\CODEINE PHOSPHATE
     Indication: PAIN
     Dosage: 300/60 MG
     Route: 048

REACTIONS (2)
  - Foreign body [Not Recovered/Not Resolved]
  - Oesophageal irritation [Not Recovered/Not Resolved]
